FAERS Safety Report 18508427 (Version 8)
Quarter: 2025Q1

REPORT INFORMATION
  Report Type: Spontaneous
  Country: PK (occurrence: PK)
  Receive Date: 20201116
  Receipt Date: 20250321
  Transmission Date: 20250408
  Serious: Yes (Other)
  Sender: AMGEN
  Company Number: PK-PFIZER INC-2020181370

PATIENT
  Age: 59 Year
  Sex: Male

DRUGS (36)
  1. ENBREL [Suspect]
     Active Substance: ETANERCEPT
     Indication: Spondyloarthropathy
     Dosage: 50 MG, ONCE WEEKLY
     Route: 058
     Dates: start: 202004
  2. ENBREL [Suspect]
     Active Substance: ETANERCEPT
     Route: 058
     Dates: start: 2020
  3. ENBREL [Suspect]
     Active Substance: ETANERCEPT
     Route: 058
     Dates: start: 20200504
  4. ENBREL [Suspect]
     Active Substance: ETANERCEPT
     Route: 058
  5. ENBREL [Suspect]
     Active Substance: ETANERCEPT
     Route: 058
     Dates: start: 202301
  6. ENBREL [Suspect]
     Active Substance: ETANERCEPT
     Route: 058
     Dates: start: 202303
  7. Xcept [Concomitant]
     Route: 065
     Dates: start: 2017
  8. Sert [Concomitant]
     Dosage: 50 MG, DAILY
     Route: 065
     Dates: start: 2020
  9. FOLIC ACID [Concomitant]
     Active Substance: FOLIC ACID
     Route: 065
     Dates: start: 2019
  10. FOLIC ACID [Concomitant]
     Active Substance: FOLIC ACID
  11. SULFASALAZINE [Concomitant]
     Active Substance: SULFASALAZINE
  12. SULFASALAZINE [Concomitant]
     Active Substance: SULFASALAZINE
  13. SULFASALAZINE [Concomitant]
     Active Substance: SULFASALAZINE
  14. PANADOL [Concomitant]
     Active Substance: ACETAMINOPHEN
     Indication: Pain
  15. PANADOL [Concomitant]
     Active Substance: ACETAMINOPHEN
  16. ETORICOXIB [Concomitant]
     Active Substance: ETORICOXIB
     Indication: Pain
     Dosage: 60 MG, 1X/DAY
  17. ETORICOXIB [Concomitant]
     Active Substance: ETORICOXIB
     Dosage: 120 MG, 1X/DAY
  18. Sunvite [Concomitant]
     Route: 065
  19. Sunvite [Concomitant]
     Route: 065
  20. Sunvite [Concomitant]
  21. Sunvite [Concomitant]
  22. DICLOFENAC SODIUM [Concomitant]
     Active Substance: DICLOFENAC SODIUM
     Indication: Pain
     Dosage: 100 MG, 1X/DAY
     Route: 065
  23. Risek [Concomitant]
     Indication: Abdominal discomfort
     Route: 065
  24. Calvan [Concomitant]
     Dosage: ONE DAILY
     Route: 065
  25. IRBESARTAN [Concomitant]
     Active Substance: IRBESARTAN
     Indication: Hypotension
     Route: 065
  26. Nuberol [Concomitant]
  27. Zee [Concomitant]
  28. PREGABALIN [Concomitant]
     Active Substance: PREGABALIN
  29. BOSENTAN [Concomitant]
     Active Substance: BOSENTAN
  30. ACECLOFENAC [Concomitant]
     Active Substance: ACECLOFENAC
     Indication: Pain
  31. Risek insta [Concomitant]
     Indication: Pain
     Route: 065
  32. Risek insta [Concomitant]
     Indication: Abdominal pain upper
  33. ONDANSETRON [Concomitant]
     Active Substance: ONDANSETRON
     Indication: Bone disorder
  34. Indrop d [Concomitant]
     Dosage: 1 DF, MONTHLY (EVERY 4 MONTHS)
  35. Osent [Concomitant]
     Indication: Bone disorder
  36. SULFASALAZINE [Concomitant]
     Active Substance: SULFASALAZINE

REACTIONS (11)
  - COVID-19 [Recovered/Resolved]
  - Osteoarthritis [Unknown]
  - Condition aggravated [Unknown]
  - Rash [Unknown]
  - Blood pressure increased [Unknown]
  - Heart rate increased [Unknown]
  - Weight increased [Unknown]
  - Hypotension [Unknown]
  - Pain [Unknown]
  - Drug ineffective [Unknown]
  - Off label use [Unknown]

NARRATIVE: CASE EVENT DATE: 20200101
